FAERS Safety Report 20353658 (Version 1)
Quarter: 2022Q1

REPORT INFORMATION
  Report Type: Spontaneous
  Country: US (occurrence: US)
  Receive Date: 20220120
  Receipt Date: 20220120
  Transmission Date: 20220423
  Serious: Yes (Hospitalization, Other)
  Sender: FDA-Public Use
  Company Number: US-VALIDUS PHARMACEUTICALS LLC-US-VDP-2022-014963

PATIENT

DRUGS (3)
  1. LASIX [Suspect]
     Active Substance: FUROSEMIDE
     Indication: Product used for unknown indication
     Dosage: UNK
     Route: 065
  2. MACITENTAN [Suspect]
     Active Substance: MACITENTAN
     Indication: Pulmonary arterial hypertension
     Dosage: UNK
     Route: 048
  3. SILDENAFIL [Concomitant]
     Active Substance: SILDENAFIL
     Indication: Product used for unknown indication
     Dosage: UNK
     Route: 065

REACTIONS (12)
  - Pneumonia [Unknown]
  - Oxygen saturation decreased [Unknown]
  - Seizure [Unknown]
  - Neck pain [Unknown]
  - Blood pressure decreased [Unknown]
  - Oedema [Unknown]
  - Nasal congestion [Unknown]
  - Dyspnoea [Unknown]
  - Decreased appetite [Unknown]
  - Dry mouth [Unknown]
  - Nasal dryness [Unknown]
  - Peripheral coldness [Unknown]
